FAERS Safety Report 8505610-8 (Version None)
Quarter: 2012Q3

REPORT INFORMATION
  Report Type: 
  Country: None (occurrence: None)
  Receive Date: 20120712
  Receipt Date: 20120704
  Transmission Date: 20120928
  Serious: Yes (Hospitalization, Other)
  Sender: FDA-Public Use
  Company Number: JP-PFIZER INC-2012159808

PATIENT
  Age: 10 Year
  Sex: Male

DRUGS (3)
  1. ZITHROMAX [Suspect]
  2. CLARITHROMYCIN [Suspect]
  3. ERYTHROMYCIN [Suspect]

REACTIONS (4)
  - PNEUMONIA MYCOPLASMAL [None]
  - STEVENS-JOHNSON SYNDROME [None]
  - PYREXIA [None]
  - COUGH [None]
